FAERS Safety Report 4512239-5 (Version None)
Quarter: 2004Q4

REPORT INFORMATION
  Report Type: 
  Country: None (occurrence: None)
  Receive Date: 20041123
  Receipt Date: 20041111
  Transmission Date: 20050328
  Serious: Yes (Hospitalization)
  Sender: FDA-Public Use
  Company Number: 240449

PATIENT
  Age: 54 Year
  Sex: Female

DRUGS (3)
  1. ACTIVELLE [Suspect]
     Indication: ILL-DEFINED DISORDER
     Dosage: PER ORAL
     Route: 048
     Dates: start: 20040801
  2. BELOC ZOK (METOPROLOL SUCCINATE) [Concomitant]
  3. INSIDON ^CIBA-GEIGY^ (OPIPRAMOL HYDROCHLORIDE) [Concomitant]

REACTIONS (9)
  - AORTIC VALVE INCOMPETENCE [None]
  - ARRHYTHMIA [None]
  - ASTHENIA [None]
  - CORONARY ARTERY STENOSIS [None]
  - MYOCARDIAL INFARCTION [None]
  - PERICARDIAL EFFUSION [None]
  - POSTINFARCTION ANGINA [None]
  - VENTRICULAR FIBRILLATION [None]
  - VENTRICULAR HYPOKINESIA [None]
